FAERS Safety Report 9167821 (Version 1)
Quarter: 2013Q1

REPORT INFORMATION
  Report Type: Spontaneous
  Country: US (occurrence: None)
  Receive Date: 20130304
  Receipt Date: 20130304
  Transmission Date: 20140127
  Serious: Yes (Hospitalization)
  Sender: FDA-Public Use
  Company Number: ACO_34489_2013

PATIENT
  Age: 51 Year
  Sex: Female

DRUGS (15)
  1. AMPYRA (DALFAMPRIDINE) TABLET, 10MG [Suspect]
     Indication: MULTIPLE SCLEROSIS
     Dates: start: 201208
  2. AVONEX [Suspect]
  3. CYMBALTA (DULOXETINE HYDROCHLORIDE) [Concomitant]
  4. NORVASC (AMLODIPINE BESILATE) [Concomitant]
  5. METFORMIN HCL (METFORMIN HYDROCHLORIDE) [Concomitant]
  6. SIMVASTATIN (SIMVASTATIN) [Concomitant]
  7. FOLIC ACID (FOLIC ACID) [Concomitant]
  8. LABETALOL (LABETALOL HYDROCHLORIDE) [Concomitant]
  9. FERROUS SULFATE (FERROUS SULFATE) [Concomitant]
  10. TIZANIDINE HYDROCHLORIDE (TIZANIDINE HYDROCHLORIDE) [Concomitant]
  11. ASPIRIN (ACETYLSALICYLIC ACID) [Concomitant]
  12. PLAVIX (CLOPIDOGREL BISULFATE) [Concomitant]
  13. VESICARE (SOLIFENACIN SUCCINATE) [Concomitant]
  14. FISH OIL (FISH OIL) [Concomitant]
  15. VITAMIN D3 (COLECALCIFEROL) [Concomitant]

REACTIONS (4)
  - Head injury [None]
  - Confusional state [None]
  - Fall [None]
  - Asthenia [None]
